FAERS Safety Report 16499692 (Version 1)
Quarter: 2019Q3

REPORT INFORMATION
  Report Type: Spontaneous
  Country: US (occurrence: US)
  Receive Date: 20190701
  Receipt Date: 20190701
  Transmission Date: 20191004
  Serious: Yes (Death, Life-Threatening, Other)
  Sender: FDA-Public Use
  Company Number: US-ACCORD-135248

PATIENT
  Age: 32 Year
  Sex: Female

DRUGS (8)
  1. VINCRISTINE [Suspect]
     Active Substance: VINCRISTINE
     Indication: ACUTE LYMPHOCYTIC LEUKAEMIA
     Dosage: SALVAGE CHEMOTHERAPY
  2. DEXAMETHASONE. [Suspect]
     Active Substance: DEXAMETHASONE
     Indication: ACUTE LYMPHOCYTIC LEUKAEMIA
     Dosage: SALVAGE CHEMOTHERAPY
  3. SULFAMETHOXAZOLE/TRIMETHOPRIM [Concomitant]
     Indication: STENOTROPHOMONAS INFECTION
  4. SULFAMETHOXAZOLE/TRIMETHOPRIM [Concomitant]
     Indication: ESCHERICHIA INFECTION
  5. ERTAPENEM. [Concomitant]
     Active Substance: ERTAPENEM SODIUM
     Indication: ESCHERICHIA INFECTION
  6. ERTAPENEM/ERTAPENEM SODIUM [Concomitant]
     Indication: STENOTROPHOMONAS INFECTION
  7. PEGASPARGASE [Suspect]
     Active Substance: PEGASPARGASE
     Indication: ACUTE LYMPHOCYTIC LEUKAEMIA
     Dosage: SALVAGE CHEMOTHERAPY
  8. METHOTREXATE. [Suspect]
     Active Substance: METHOTREXATE
     Indication: ACUTE LYMPHOCYTIC LEUKAEMIA

REACTIONS (3)
  - Hyperammonaemia [Fatal]
  - Ureaplasma infection [Fatal]
  - Febrile neutropenia [Unknown]
